FAERS Safety Report 7770349-3 (Version None)
Quarter: 2011Q3

REPORT INFORMATION
  Report Type: 
  Country: None (occurrence: None)
  Receive Date: 20110922
  Receipt Date: 20100226
  Transmission Date: 20111222
  Serious: Yes (Hospitalization)
  Sender: FDA-Public Use
  Company Number: US-ASTRAZENECA-2008UW20901

PATIENT
  Age: 20951 Day
  Sex: Female

DRUGS (10)
  1. SEROQUEL [Suspect]
     Route: 048
     Dates: start: 20050831
  2. VALPROIC ACID [Concomitant]
     Dates: start: 20070101
  3. VERAPAMIL [Concomitant]
     Dates: start: 20070101
  4. PROGRAF [Concomitant]
     Dates: start: 20070101
  5. MYCOPHENOLATE MOFETIL (CELLCEPT) [Concomitant]
     Dosage: 1500-2000 MG
     Route: 048
     Dates: start: 20050831
  6. SODIUM BICARBONATE [Concomitant]
     Dates: start: 20070101
  7. LISINOPRIL [Concomitant]
     Dates: start: 20070101
  8. LITHIUM CARBONATE [Concomitant]
  9. PREDNISONE [Concomitant]
     Dates: start: 20070101
  10. MYCOPHENOLATE MOFETIL (CELLCEPT) [Concomitant]
     Route: 048
     Dates: start: 20050831

REACTIONS (2)
  - DIABETES MELLITUS [None]
  - TYPE 1 DIABETES MELLITUS [None]
